FAERS Safety Report 8012498-0 (Version None)
Quarter: 2011Q4

REPORT INFORMATION
  Report Type: 
  Country: None (occurrence: None)
  Receive Date: 20111229
  Receipt Date: 20111221
  Transmission Date: 20120403
  Serious: Yes (Hospitalization)
  Sender: FDA-Public Use
  Company Number: US-BIOGENIDEC-2011BI018755

PATIENT
  Age: 64 Year
  Sex: Female

DRUGS (2)
  1. TYSABRI [Suspect]
     Indication: MULTIPLE SCLEROSIS
     Route: 042
     Dates: start: 20110211
  2. TYSABRI [Suspect]
     Route: 042
     Dates: start: 20090811, end: 20100526

REACTIONS (5)
  - SLEEP APNOEA SYNDROME [None]
  - FATIGUE [None]
  - HAEMORRHAGE [None]
  - DEPRESSED MOOD [None]
  - CORONARY ARTERY OCCLUSION [None]
